FAERS Safety Report 7463758-3 (Version None)
Quarter: 2011Q2

REPORT INFORMATION
  Report Type: 
  Country: None (occurrence: None)
  Receive Date: 20110506
  Receipt Date: 20110503
  Transmission Date: 20111010
  Serious: Yes (Other)
  Sender: FDA-Public Use
  Company Number: CN-ABBOTT-11P-035-0723353-00

PATIENT
  Age: 21 Year
  Sex: Male

DRUGS (4)
  1. DEPAKENE [Suspect]
     Route: 048
     Dates: start: 20110401
  2. CARBAMAZEPINE [Concomitant]
     Indication: PRODUCT USED FOR UNKNOWN INDICATION
  3. DEPAKENE [Suspect]
     Indication: EPILEPSY
     Route: 048
     Dates: start: 20110201, end: 20110301
  4. DEPAKENE [Suspect]
     Route: 048
     Dates: start: 20110301, end: 20110401

REACTIONS (2)
  - PETIT MAL EPILEPSY [None]
  - DIZZINESS [None]
